FAERS Safety Report 4825133-7 (Version None)
Quarter: 2005Q4

REPORT INFORMATION
  Report Type: 
  Country: None (occurrence: None)
  Receive Date: 20051109
  Receipt Date: 20051109
  Transmission Date: 20060501
  Serious: Yes (Disabling)
  Sender: FDA-Public Use
  Company Number: None

PATIENT
  Sex: Male
  Weight: 61.2356 kg

DRUGS (1)
  1. SEPTOCAINE [Suspect]
     Indication: LOCAL ANAESTHESIA
     Dosage: .9 ML RT SIDE 1 INJECTION; .9 ML LT SIDE 1 INJECTION
     Dates: start: 20050909

REACTIONS (2)
  - PARAESTHESIA [None]
  - POST PROCEDURAL COMPLICATION [None]
